FAERS Safety Report 6085260-6 (Version None)
Quarter: 2009Q1

REPORT INFORMATION
  Report Type: 
  Country: None (occurrence: None)
  Receive Date: 20090220
  Receipt Date: 20090204
  Transmission Date: 20090719
  Serious: Yes (Hospitalization)
  Sender: FDA-Public Use
  Company Number: US-BAYER-200830521NA

PATIENT
  Age: 52 Year
  Sex: Male
  Weight: 86 kg

DRUGS (26)
  1. CAMPATH [Suspect]
     Indication: CHRONIC LYMPHOCYTIC LEUKAEMIA
     Dosage: TOTAL DAILY DOSE: 30 MG
     Route: 058
     Dates: start: 20081024, end: 20081029
  2. CAMPATH [Suspect]
     Dosage: TOTAL DAILY DOSE: 30 MG
     Route: 058
     Dates: start: 20080905, end: 20080915
  3. CAMPATH [Suspect]
     Dosage: TOTAL DAILY DOSE: 30 MG
     Route: 058
     Dates: start: 20080630, end: 20080801
  4. BACTRIM DS [Concomitant]
     Indication: PROPHYLAXIS
     Route: 048
     Dates: start: 20080630, end: 20080818
  5. BACTRIM DS [Concomitant]
     Route: 048
     Dates: start: 20080818, end: 20080819
  6. VALACYCLOVIR HCL [Concomitant]
     Dosage: TOTAL DAILY DOSE: 1000 MG  UNIT DOSE: 500 MG
     Route: 048
     Dates: start: 20080630, end: 20081001
  7. VALACYCLOVIR HCL [Concomitant]
     Dates: start: 20081114
  8. ACETAMINOPHEN [Concomitant]
     Indication: PYREXIA
     Route: 048
     Dates: start: 20080818
  9. ACETAMINOPHEN [Concomitant]
     Dates: start: 20080630
  10. ACYCLOVIR [Concomitant]
     Dates: start: 20080818
  11. DAPSONE [Concomitant]
     Indication: PROPHYLAXIS
     Route: 048
     Dates: start: 20080819, end: 20080827
  12. DAPSONE [Concomitant]
     Route: 048
     Dates: start: 20080819
  13. FERROUS SULFATE TAB [Concomitant]
     Indication: ANAEMIA
     Dosage: TOTAL DAILY DOSE: 650 MG  UNIT DOSE: 325 MG
     Route: 048
     Dates: start: 20080823
  14. ACETAMINOPHEN AND HYDROCODONE BITARTRATE [Concomitant]
     Indication: PAIN
     Route: 048
     Dates: start: 20080823
  15. IMMUNE GLOBULIN INTRAVENOUS (HUMAN) [Concomitant]
     Indication: THERAPEUTIC PROCEDURE
     Route: 042
     Dates: start: 20080821, end: 20080825
  16. DOXIN [Concomitant]
  17. VICODIN [Concomitant]
  18. KENALOG [Concomitant]
     Route: 061
  19. NEXIUM [Concomitant]
     Dates: start: 20080823, end: 20080827
  20. PROCRIT [Concomitant]
     Dates: start: 20080822, end: 20080822
  21. RED BLOOD CELLS [Concomitant]
     Dates: start: 20080825, end: 20080825
  22. SULFAMETHOXAZOLE AND TRIMETHOPRIM [Concomitant]
  23. DARBAPOETIN ALFA-ALBUMIN [Concomitant]
     Dosage: TOTAL DAILY DOSE: 0.3 MG
  24. FAMCICLOVIR [Concomitant]
     Dosage: TOTAL DAILY DOSE: 1000 MG  UNIT DOSE: 500 MG
     Route: 048
  25. PROCHLORPERAZINE MALEATE [Concomitant]
     Dosage: TOTAL DAILY DOSE: 10 MG  UNIT DOSE: 10 MG
     Route: 048
  26. ARIXTRA [Concomitant]
     Dates: start: 20090101

REACTIONS (2)
  - LEUKOCYTOCLASTIC VASCULITIS [None]
  - VENOUS THROMBOSIS LIMB [None]
